FAERS Safety Report 8246813-X (Version None)
Quarter: 2012Q1

REPORT INFORMATION
  Report Type: 
  Country: None (occurrence: None)
  Receive Date: 20120330
  Receipt Date: 20120320
  Transmission Date: 20120608
  Serious: Yes (Hospitalization, Other)
  Sender: FDA-Public Use
  Company Number: TW-ABBOTT-12P-153-0905001-00

PATIENT
  Sex: Male
  Weight: 48 kg

DRUGS (52)
  1. 15% KCL INJ [Concomitant]
     Indication: PRODUCT USED FOR UNKNOWN INDICATION
     Route: 042
     Dates: start: 20120205, end: 20120208
  2. EVAC ENEMA [Concomitant]
     Indication: PRODUCT USED FOR UNKNOWN INDICATION
     Dosage: STAT
     Route: 054
     Dates: start: 20120205, end: 20120205
  3. ALLEGRA [Concomitant]
     Indication: PRODUCT USED FOR UNKNOWN INDICATION
     Route: 048
     Dates: start: 20120204, end: 20120214
  4. PREDNISOLONE [Concomitant]
     Indication: PRODUCT USED FOR UNKNOWN INDICATION
     Route: 048
     Dates: start: 20120204
  5. PREDNISOLONE [Concomitant]
     Route: 048
     Dates: start: 20120130, end: 20120130
  6. FUROSEMIDE [Concomitant]
     Route: 042
     Dates: start: 20120201, end: 20120202
  7. AUGMENTIN [Concomitant]
     Route: 042
     Dates: start: 20120131, end: 20120201
  8. SOLU-CORTEF [Concomitant]
     Route: 042
     Dates: start: 20120130, end: 20120201
  9. METHOTREXATE [Concomitant]
     Indication: PRODUCT USED FOR UNKNOWN INDICATION
     Route: 048
     Dates: start: 20120130, end: 20120131
  10. HUMIRA [Suspect]
     Indication: RHEUMATOID ARTHRITIS
     Dates: start: 20090601, end: 20110606
  11. CLARITHROMYCIN [Concomitant]
     Indication: PRODUCT USED FOR UNKNOWN INDICATION
     Route: 048
     Dates: start: 20120205, end: 20120206
  12. PREDNISOLONE [Concomitant]
     Route: 048
     Dates: start: 20120203, end: 20120203
  13. ULTRACET [Concomitant]
     Indication: PRODUCT USED FOR UNKNOWN INDICATION
     Route: 048
     Dates: start: 20120202, end: 20120205
  14. HALF SALINE 500CC [Concomitant]
     Indication: PRODUCT USED FOR UNKNOWN INDICATION
     Route: 042
     Dates: start: 20120201, end: 20120211
  15. KALIMATE [Concomitant]
     Indication: PRODUCT USED FOR UNKNOWN INDICATION
     Route: 048
     Dates: start: 20120130, end: 20120130
  16. FUROSEMIDE [Concomitant]
     Route: 048
     Dates: start: 20120201, end: 20120201
  17. ULTRACET [Concomitant]
     Route: 048
     Dates: start: 20120130, end: 20120202
  18. OMELON [Concomitant]
     Indication: PRODUCT USED FOR UNKNOWN INDICATION
     Dosage: QDAC
     Route: 048
     Dates: start: 20120201, end: 20120211
  19. HALF SALINE 500CC [Concomitant]
     Dosage: STAT
     Route: 042
     Dates: start: 20120130, end: 20120130
  20. FOLIC ACID [Concomitant]
     Indication: PRODUCT USED FOR UNKNOWN INDICATION
     Route: 048
     Dates: start: 20120130, end: 20120209
  21. OMELON [Concomitant]
     Dosage: 20 MG QN
     Route: 048
     Dates: start: 20120130, end: 20120201
  22. ACETAMINOPHEN [Concomitant]
     Indication: PRODUCT USED FOR UNKNOWN INDICATION
     Dosage: 1 TAB Q6H PRN
     Dates: start: 20120205, end: 20120208
  23. ACETAMINOPHEN [Concomitant]
     Dosage: 1 TAB Q6H PRN
     Route: 048
     Dates: start: 20120202, end: 20120205
  24. PRIMPERAN TAB [Concomitant]
     Indication: PRODUCT USED FOR UNKNOWN INDICATION
     Dosage: STAT
     Route: 042
     Dates: start: 20120204, end: 20120204
  25. PIPERACILLIN AND TAZOBACTAM [Concomitant]
     Indication: PRODUCT USED FOR UNKNOWN INDICATION
     Route: 042
     Dates: start: 20120203, end: 20120206
  26. SILYMARIN [Concomitant]
     Route: 048
     Dates: start: 20120130, end: 20120202
  27. ACETYLCYSTEINE [Concomitant]
     Indication: PRODUCT USED FOR UNKNOWN INDICATION
     Route: 048
     Dates: start: 20120201, end: 20120211
  28. UDV COMBIVENT [Concomitant]
     Indication: PRODUCT USED FOR UNKNOWN INDICATION
     Route: 055
     Dates: start: 20120130
  29. LACTUL [Concomitant]
     Indication: PRODUCT USED FOR UNKNOWN INDICATION
     Route: 048
     Dates: start: 20120130, end: 20120130
  30. ARAVA [Concomitant]
     Indication: PRODUCT USED FOR UNKNOWN INDICATION
     Route: 048
     Dates: start: 20120130, end: 20120201
  31. 15% KCL INJ [Concomitant]
     Route: 042
     Dates: start: 20120205, end: 20120205
  32. CIMEWELL [Concomitant]
     Indication: PRODUCT USED FOR UNKNOWN INDICATION
     Dosage: STAT
     Route: 048
     Dates: start: 20120205, end: 20120205
  33. PREDNISOLONE [Concomitant]
     Route: 048
     Dates: start: 20120202, end: 20120203
  34. FUROSEMIDE [Concomitant]
     Indication: PRODUCT USED FOR UNKNOWN INDICATION
     Dosage: STAT
     Route: 042
     Dates: start: 20120203, end: 20120204
  35. ERYMYCIN [Concomitant]
     Indication: PRODUCT USED FOR UNKNOWN INDICATION
     Route: 048
     Dates: start: 20120203, end: 20120205
  36. TAPIMYCIN [Concomitant]
     Indication: PRODUCT USED FOR UNKNOWN INDICATION
     Route: 042
     Dates: start: 20120201, end: 20120201
  37. XANTHIUM [Concomitant]
     Indication: PRODUCT USED FOR UNKNOWN INDICATION
     Route: 048
     Dates: start: 20120130, end: 20120209
  38. DESLORATADINE [Concomitant]
     Indication: PRODUCT USED FOR UNKNOWN INDICATION
     Route: 048
     Dates: start: 20120130, end: 20120201
  39. PREDNISOLONE [Concomitant]
     Route: 048
     Dates: start: 20120203, end: 20120204
  40. HALF SALINE 500CC [Concomitant]
     Route: 042
     Dates: start: 20120130, end: 20120130
  41. HALF SALINE 500CC [Concomitant]
     Route: 042
     Dates: start: 20120130, end: 20120201
  42. SOLU-CORTEF [Concomitant]
     Indication: PRODUCT USED FOR UNKNOWN INDICATION
     Route: 042
     Dates: start: 20120201, end: 20120203
  43. CIMEWELL [Concomitant]
     Route: 048
     Dates: start: 20120130, end: 20120201
  44. TUBERSOL [Concomitant]
     Indication: PRODUCT USED FOR UNKNOWN INDICATION
     Dosage: STAT
     Dates: start: 20120203, end: 20120203
  45. SILYMARIN [Concomitant]
     Indication: PRODUCT USED FOR UNKNOWN INDICATION
     Route: 048
     Dates: start: 20120202, end: 20120212
  46. FUSIDIC ACID [Concomitant]
     Indication: PRODUCT USED FOR UNKNOWN INDICATION
     Route: 061
     Dates: start: 20120201, end: 20120211
  47. MEPERIDINE HCL [Concomitant]
     Indication: PRODUCT USED FOR UNKNOWN INDICATION
     Dosage: 12.5 MG Q6H PRN
     Route: 042
     Dates: start: 20120205, end: 20120210
  48. ISMO [Concomitant]
     Indication: PRODUCT USED FOR UNKNOWN INDICATION
     Route: 048
     Dates: start: 20120202, end: 20120203
  49. AUGMENTIN [Concomitant]
     Indication: PRODUCT USED FOR UNKNOWN INDICATION
     Route: 042
     Dates: start: 20120201, end: 20120203
  50. UNASYN [Concomitant]
     Indication: PRODUCT USED FOR UNKNOWN INDICATION
     Route: 042
     Dates: start: 20120130, end: 20120131
  51. VALSARTAN [Concomitant]
     Indication: PRODUCT USED FOR UNKNOWN INDICATION
     Route: 048
     Dates: start: 20120130, end: 20120205
  52. BENZONATATE [Concomitant]
     Indication: PRODUCT USED FOR UNKNOWN INDICATION
     Dosage: 1 CAP BID AND QHS
     Route: 048
     Dates: start: 20120130, end: 20120131

REACTIONS (14)
  - MENINGITIS CRYPTOCOCCAL [None]
  - DISSEMINATED INTRAVASCULAR COAGULATION [None]
  - BLOOD CREATININE INCREASED [None]
  - PULMONARY OEDEMA [None]
  - PNEUMONIA CRYPTOCOCCAL [None]
  - PULMONARY FUNCTION TEST DECREASED [None]
  - PULMONARY MASS [None]
  - LUNG INFILTRATION [None]
  - UPPER GASTROINTESTINAL HAEMORRHAGE [None]
  - OXYGEN SATURATION DECREASED [None]
  - RESPIRATORY ACIDOSIS [None]
  - PNEUMONIA BACTERIAL [None]
  - HYPOTENSION [None]
  - THROMBOCYTOPENIA [None]
